FAERS Safety Report 8606467-7 (Version None)
Quarter: 2012Q3

REPORT INFORMATION
  Report Type: 
  Country: None (occurrence: None)
  Receive Date: 20120809
  Receipt Date: 20120809
  Transmission Date: 20120928
  Serious: Yes (Hospitalization)
  Sender: FDA-Public Use
  Company Number: None

PATIENT
  Sex: Male
  Weight: 88.1 kg

DRUGS (1)
  1. CISPLATIN [Suspect]
     Dosage: 200 MG

REACTIONS (9)
  - DIABETES MELLITUS [None]
  - ASPIRATION [None]
  - PNEUMONIA [None]
  - ASTHENIA [None]
  - HYPERKALAEMIA [None]
  - FATIGUE [None]
  - HYPONATRAEMIA [None]
  - GASTROOESOPHAGEAL REFLUX DISEASE [None]
  - RENAL FAILURE ACUTE [None]
